FAERS Safety Report 7043705-9 (Version None)
Quarter: 2010Q4

REPORT INFORMATION
  Report Type: 
  Country: None (occurrence: None)
  Receive Date: 20101013
  Receipt Date: 20101007
  Transmission Date: 20110411
  Serious: Yes (Other)
  Sender: FDA-Public Use
  Company Number: DE-BAXTER-2010BH025273

PATIENT
  Age: 60 Year
  Sex: Male

DRUGS (3)
  1. ANTIHEMOPHILIC FACTOR (HUMAN) [Suspect]
     Indication: FACTOR VIII DEFICIENCY
     Route: 065
  2. FEIBA [Suspect]
     Indication: FACTOR VIII INHIBITION
     Route: 065
  3. UNSPECIFIED ANTIFIBRINOLYTICS [Suspect]
     Indication: FACTOR VIII INHIBITION
     Route: 065

REACTIONS (2)
  - FACTOR VIII INHIBITION [None]
  - IMPAIRED HEALING [None]
